FAERS Safety Report 16884835 (Version 1)
Quarter: 2019Q4

REPORT INFORMATION
  Report Type: Spontaneous
  Country: US (occurrence: US)
  Receive Date: 20191004
  Receipt Date: 20191004
  Transmission Date: 20200122
  Serious: Yes (Hospitalization)
  Sender: FDA-Public Use
  Company Number: US-MYLANLABS-2019M1093169

PATIENT
  Age: 65 Year
  Sex: Female

DRUGS (3)
  1. DEPAKOTE [Concomitant]
     Active Substance: DIVALPROEX SODIUM
     Indication: BIPOLAR DISORDER
     Route: 065
  2. VALPROIC ACID. [Concomitant]
     Active Substance: VALPROIC ACID
     Indication: BIPOLAR DISORDER
     Route: 065
  3. LITHIUM. [Suspect]
     Active Substance: LITHIUM
     Indication: BIPOLAR DISORDER
     Dosage: AT NIGHT
     Route: 065
     Dates: end: 201303

REACTIONS (6)
  - Renal tubular disorder [Unknown]
  - Goitre [Unknown]
  - Hyperparathyroidism [Recovering/Resolving]
  - Chronic kidney disease [Recovering/Resolving]
  - Hypercalcaemia [Recovering/Resolving]
  - Nephrogenic diabetes insipidus [Unknown]
